FAERS Safety Report 4322078-6 (Version None)
Quarter: 2004Q1

REPORT INFORMATION
  Report Type: 
  Country: None (occurrence: None)
  Receive Date: 20040323
  Receipt Date: 20031008
  Transmission Date: 20041129
  Serious: Yes (Other)
  Sender: FDA-Public Use
  Company Number: US-GLAXOSMITHKLINE-A0429533A

PATIENT
  Age: 74 Year
  Sex: Female
  Weight: 51.4 kg

DRUGS (2)
  1. PAXIL CR [Suspect]
     Indication: GENERALISED ANXIETY DISORDER
     Dosage: 12.5MG PER DAY
     Route: 048
     Dates: start: 20030826, end: 20030920
  2. ARICEPT [Concomitant]

REACTIONS (7)
  - COMMUNICATION DISORDER [None]
  - DECREASED INTEREST [None]
  - DISSOCIATION [None]
  - DYSSTASIA [None]
  - ILL-DEFINED DISORDER [None]
  - LETHARGY [None]
  - PERSONALITY CHANGE [None]
